FAERS Safety Report 21246137 (Version 1)
Quarter: 2022Q3

REPORT INFORMATION
  Report Type: Other
  Country: ES (occurrence: None)
  Receive Date: 20220824
  Receipt Date: 20220824
  Transmission Date: 20221027
  Serious: Yes (Other)
  Sender: FDA-Public Use
  Company Number: ES-ROCHE-3164044

PATIENT
  Age: 51 Year
  Sex: Female

DRUGS (7)
  1. CAPECITABINE [Suspect]
     Active Substance: CAPECITABINE
     Indication: Acinar cell carcinoma of pancreas
     Route: 048
  2. GEMCITABINE [Suspect]
     Active Substance: GEMCITABINE
     Indication: Acinar cell carcinoma of pancreas
     Route: 065
  3. RITUXIMAB [Concomitant]
     Active Substance: RITUXIMAB
     Route: 065
  4. CYCLOPHOSPHAMIDE [Concomitant]
     Active Substance: CYCLOPHOSPHAMIDE
  5. DOXORUBICIN HYDROCHLORIDE [Concomitant]
     Active Substance: DOXORUBICIN HYDROCHLORIDE
  6. VINCRISTINE SULFATE [Concomitant]
     Active Substance: VINCRISTINE SULFATE
  7. PREDNISONE [Concomitant]
     Active Substance: PREDNISONE

REACTIONS (2)
  - Metastases to liver [Unknown]
  - Disease progression [Unknown]
